FAERS Safety Report 5912608-2 (Version None)
Quarter: 2008Q3

REPORT INFORMATION
  Report Type: 
  Country: None (occurrence: None)
  Receive Date: 20080919
  Receipt Date: 20080604
  Transmission Date: 20090109
  Serious: Yes (Hospitalization)
  Sender: FDA-Public Use
  Company Number: 2008-03057

PATIENT
  Age: 80 Year
  Sex: Female
  Weight: 56.7 kg

DRUGS (1)
  1. FENTANYL-50 [Suspect]
     Indication: PAIN IN EXTREMITY
     Dosage: 1 PATCH, SINGLE, TRANSDERMAL
     Route: 062
     Dates: start: 20080509, end: 20080510

REACTIONS (2)
  - CHEST PAIN [None]
  - DRUG INEFFECTIVE [None]
